FAERS Safety Report 6416749-5 (Version None)
Quarter: 2009Q4

REPORT INFORMATION
  Report Type: 
  Country: None (occurrence: None)
  Receive Date: 20091027
  Receipt Date: 20091015
  Transmission Date: 20100525
  Serious: Yes (Hospitalization)
  Sender: FDA-Public Use
  Company Number: US-JNJCH-2009028068

PATIENT
  Sex: Male
  Weight: 104 kg

DRUGS (5)
  1. ASPIRIN [Suspect]
     Indication: ACUTE CORONARY SYNDROME
     Dosage: TEXT:81 MG
     Route: 065
  2. ANTITHROMBOTIC AGENTS [Suspect]
     Indication: ACUTE CORONARY SYNDROME
     Dosage: TEXT:2.5 MG
     Route: 048
     Dates: start: 20090813, end: 20090813
  3. PLACEBO [Suspect]
     Indication: ACUTE CORONARY SYNDROME
     Route: 048
  4. PLACEBO [Suspect]
     Route: 048
  5. ANTITHROMBOTIC AGENTS [Suspect]
     Dosage: TEXT:75 MG
     Route: 065

REACTIONS (1)
  - HAEMORRHOIDAL HAEMORRHAGE [None]
